FAERS Safety Report 21539081 (Version 2)
Quarter: 2022Q4

REPORT INFORMATION
  Report Type: Spontaneous
  Country: US (occurrence: US)
  Receive Date: 20221102
  Receipt Date: 20221108
  Transmission Date: 20230113
  Serious: No
  Sender: FDA-Public Use
  Company Number: US-NOVARTISTESTPH-NVSC2022US243733

PATIENT
  Sex: Female

DRUGS (1)
  1. GLATOPA [Suspect]
     Active Substance: GLATIRAMER ACETATE
     Indication: Product used for unknown indication
     Dosage: 40 MILLIGRAM PER MILLILITRE, (3X A WEEK)
     Route: 065
     Dates: start: 20220907

REACTIONS (5)
  - Pain in extremity [Unknown]
  - Injection site pain [Unknown]
  - Erythema [Unknown]
  - Peripheral swelling [Recovered/Resolved]
  - Wrong technique in product usage process [Unknown]
